FAERS Safety Report 24055283 (Version 1)
Quarter: 2024Q3

REPORT INFORMATION
  Report Type: Spontaneous
  Country: CN (occurrence: CN)
  Receive Date: 20240705
  Receipt Date: 20240705
  Transmission Date: 20241016
  Serious: Yes (Other)
  Sender: BAYER
  Company Number: CN-BAYER-2024A095109

PATIENT
  Age: 9 Year
  Sex: Male
  Weight: 31 kg

DRUGS (2)
  1. GADOBUTROL [Suspect]
     Active Substance: GADOBUTROL
     Indication: Computerised tomogram
     Dosage: 9 ML, ONCE
     Route: 042
     Dates: start: 20240627, end: 20240627
  2. GADOBUTROL [Suspect]
     Active Substance: GADOBUTROL
     Indication: Arrhythmia

REACTIONS (3)
  - Myocardial necrosis marker increased [Recovering/Resolving]
  - Nausea [Recovering/Resolving]
  - Vomiting [Recovering/Resolving]

NARRATIVE: CASE EVENT DATE: 20240627
